FAERS Safety Report 7822155-9 (Version None)
Quarter: 2011Q4

REPORT INFORMATION
  Report Type: 
  Country: None (occurrence: None)
  Receive Date: 20111018
  Receipt Date: 20110627
  Transmission Date: 20120403
  Serious: No
  Sender: FDA-Public Use
  Company Number: US-ASTRAZENECA-2011SE11602

PATIENT
  Age: 51 Year
  Sex: Male

DRUGS (1)
  1. SYMBICORT [Suspect]
     Dosage: 160/4.5 MCG 2 PUFFS, BID
     Route: 055

REACTIONS (6)
  - TONGUE DISORDER [None]
  - GLOSSITIS [None]
  - WHEEZING [None]
  - DRUG DOSE OMISSION [None]
  - SWOLLEN TONGUE [None]
  - GLOSSODYNIA [None]
